FAERS Safety Report 4336137-5 (Version None)
Quarter: 2004Q1

REPORT INFORMATION
  Report Type: 
  Country: None (occurrence: None)
  Receive Date: 20040329
  Receipt Date: 20040106
  Transmission Date: 20041129
  Serious: No
  Sender: FDA-Public Use
  Company Number: USA040155908

PATIENT
  Age: 8 Week
  Sex: Male
  Weight: 5 kg

DRUGS (2)
  1. STRATTERA [Suspect]
     Dosage: 18 MG
  2. THEOPHYLLINE [Concomitant]

REACTIONS (5)
  - ACCIDENTAL OVERDOSE [None]
  - DIARRHOEA [None]
  - LETHARGY [None]
  - MEDICATION ERROR [None]
  - VOMITING [None]
